FAERS Safety Report 19429730 (Version 1)
Quarter: 2021Q2

REPORT INFORMATION
  Report Type: Spontaneous
  Country: FR (occurrence: FR)
  Receive Date: 20210617
  Receipt Date: 20210617
  Transmission Date: 20210717
  Serious: Yes (Death)
  Sender: FDA-Public Use
  Company Number: FR-009507513-2106FRA003861

PATIENT
  Age: 72 Year
  Sex: Female
  Weight: 66 kg

DRUGS (10)
  1. LERCAN [Concomitant]
     Active Substance: LERCANIDIPINE
  2. BROMAZEPAM [Concomitant]
     Active Substance: BROMAZEPAM
  3. DAFALGAN [Concomitant]
     Active Substance: ACETAMINOPHEN
  4. SYMBICORT [Concomitant]
     Active Substance: BUDESONIDE\FORMOTEROL FUMARATE DIHYDRATE
  5. LEVOTHYROX [Concomitant]
     Active Substance: LEVOTHYROXINE
  6. BISOCE [Concomitant]
     Active Substance: BISOPROLOL
  7. KEYTRUDA [Suspect]
     Active Substance: PEMBROLIZUMAB
     Indication: OROPHARYNGEAL SQUAMOUS CELL CARCINOMA
     Dosage: 200 MILLIGRAM, Q3W
     Route: 042
     Dates: start: 20210412, end: 20210503
  8. INEXIUM [ESOMEPRAZOLE MAGNESIUM] [Concomitant]
     Active Substance: ESOMEPRAZOLE MAGNESIUM
  9. CORDARONE [Concomitant]
     Active Substance: AMIODARONE HYDROCHLORIDE
  10. XARELTO [Concomitant]
     Active Substance: RIVAROXABAN

REACTIONS (1)
  - Interstitial lung disease [Fatal]

NARRATIVE: CASE EVENT DATE: 20210518
